FAERS Safety Report 9200529 (Version 1)
Quarter: 2013Q1

REPORT INFORMATION
  Report Type: Spontaneous
  Country: US (occurrence: US)
  Receive Date: 20130329
  Receipt Date: 20130329
  Transmission Date: 20140127
  Serious: Yes (Death, Hospitalization)
  Sender: FDA-Public Use
  Company Number: US-PFIZER INC-HQ4978031OCT2002

PATIENT
  Age: 51 Year
  Sex: Female

DRUGS (4)
  1. ADVIL [Suspect]
     Indication: COMPLETED SUICIDE
     Dosage: 50 TABLETS
     Route: 048
     Dates: start: 20010612
  2. ADVIL [Suspect]
     Indication: SUICIDE ATTEMPT
  3. MOTRIN [Suspect]
     Indication: SUICIDE ATTEMPT
     Dosage: 250 TABLETS
     Route: 048
     Dates: start: 20010612
  4. ACETYLSALICYLIC ACID [Suspect]
     Indication: SUICIDE ATTEMPT
     Dosage: 162.5 G, UNK
     Route: 048
     Dates: start: 20010612

REACTIONS (9)
  - Intentional overdose [Fatal]
  - Completed suicide [Fatal]
  - Suicide attempt [Fatal]
  - Hostility [Fatal]
  - Tachycardia [Fatal]
  - Hyperventilation [Fatal]
  - Electrocardiogram abnormal [Fatal]
  - Acidosis [Fatal]
  - Leukocytosis [Fatal]
